FAERS Safety Report 20475766 (Version 1)
Quarter: 2022Q1

REPORT INFORMATION
  Report Type: Spontaneous
  Country: US (occurrence: US)
  Receive Date: 20220215
  Receipt Date: 20220215
  Transmission Date: 20220423
  Serious: No
  Sender: FDA-Public Use
  Company Number: US-PFIZER INC-202200223443

PATIENT
  Age: 44 Year
  Sex: Male

DRUGS (1)
  1. INLYTA [Suspect]
     Active Substance: AXITINIB
     Indication: Renal cell carcinoma
     Dosage: 7 MG, 2X/DAY (2 TABLETS OF 1 MG WITH 1 TABLET OF 5 MG (TOTAL DOSE 7 MG) TWICE DAILY)
     Dates: start: 202002

REACTIONS (5)
  - Blood thyroid stimulating hormone abnormal [Not Recovered/Not Resolved]
  - Blood pressure increased [Not Recovered/Not Resolved]
  - Fatigue [Not Recovered/Not Resolved]
  - Swelling [Not Recovered/Not Resolved]
  - Nerve injury [Not Recovered/Not Resolved]
